FAERS Safety Report 4942618-3 (Version None)
Quarter: 2006Q1

REPORT INFORMATION
  Report Type: 
  Country: None (occurrence: None)
  Receive Date: 20060310
  Receipt Date: 20060227
  Transmission Date: 20060701
  Serious: Yes (Hospitalization, Other)
  Sender: FDA-Public Use
  Company Number: 2006S1000044

PATIENT
  Age: 63 Year
  Sex: Female
  Weight: 46.2 kg

DRUGS (8)
  1. CUBICIN [Suspect]
     Indication: ENTEROCOCCAL BACTERAEMIA
     Dosage: 6 MG/KG/Q48H;IV
     Route: 042
     Dates: start: 20050101
  2. VANCOMYCIN [Concomitant]
  3. GENTAMICIN [Concomitant]
  4. DARBEPOETIN ALFA [Concomitant]
  5. ACETYLSALICYLIC ACID SRT [Concomitant]
  6. NEPHROCAPS [Concomitant]
  7. RENAGEL [Concomitant]
  8. PANTOPRAZOLE [Concomitant]

REACTIONS (13)
  - BLOOD CULTURE POSITIVE [None]
  - BONE MARROW FAILURE [None]
  - CATHETER SITE RELATED REACTION [None]
  - DEEP VEIN THROMBOSIS [None]
  - EOSINOPHILIA [None]
  - HAEMATOMA [None]
  - HEPARIN-INDUCED THROMBOCYTOPENIA [None]
  - HYPERPHOSPHATAEMIA [None]
  - KLEBSIELLA INFECTION [None]
  - PANCYTOPENIA [None]
  - PSEUDOMONAS INFECTION [None]
  - SEPSIS [None]
  - THROMBOPHLEBITIS SUPERFICIAL [None]
